FAERS Safety Report 10782798 (Version 2)
Quarter: 2015Q1

REPORT INFORMATION
  Report Type: Spontaneous
  Country: JP (occurrence: JP)
  Receive Date: 20150210
  Receipt Date: 20150330
  Transmission Date: 20150721
  Serious: Yes (Death)
  Sender: FDA-Public Use
  Company Number: JP-TEVA-538933ISR

PATIENT
  Age: 57 Year
  Sex: Male
  Weight: 48 kg

DRUGS (12)
  1. FENTOS (FENTANYL CITRATE) [Concomitant]
     Route: 062
     Dates: start: 20141125, end: 20150113
  2. PYRINAZIN (ACETAMINOPHEN) [Concomitant]
     Indication: PYREXIA
     Route: 048
     Dates: start: 20141112, end: 20141118
  3. E-FEN BUCCAL(FENTANYL CITRATE) [Suspect]
     Active Substance: FENTANYL CITRATE
     Dosage: 200 - 800 MCG
     Route: 002
     Dates: start: 20141113, end: 20141121
  4. ROPION (FLURBIPROFEN AXETIL) [Concomitant]
     Indication: PYREXIA
     Route: 041
     Dates: start: 20141112, end: 20150110
  5. E-FEN BUCCAL(FENTANYL CITRATE) [Suspect]
     Active Substance: FENTANYL CITRATE
     Indication: BREAKTHROUGH PAIN
     Route: 002
     Dates: start: 20141112, end: 20141112
  6. SERENACE (HALOPERIDOL) [Concomitant]
     Active Substance: HALOPERIDOL
     Route: 041
     Dates: start: 20141212, end: 20150111
  7. ATARAX-P (HYDROXYZINE HYDROCHLORIDE) [Concomitant]
     Route: 042
     Dates: start: 20150108, end: 20150112
  8. E-FEN BUCCAL(FENTANYL CITRATE) [Suspect]
     Active Substance: FENTANYL CITRATE
     Dosage: 400-1600 MCG
     Route: 002
     Dates: start: 20141122, end: 20141207
  9. FENTOS (FENTANYL CITRATE) [Concomitant]
     Indication: CANCER PAIN
     Route: 062
     Dates: start: 20141112, end: 20141116
  10. MAGMITT (MAGNESIUM OXIDE) [Concomitant]
     Active Substance: MAGNESIUM OXIDE
     Indication: CONSTIPATION
     Route: 048
     Dates: start: 20141112, end: 20141225
  11. E-FEN BUCCAL(FENTANYL CITRATE) [Suspect]
     Active Substance: FENTANYL CITRATE
     Dosage: 400MCG
     Route: 002
     Dates: start: 20141208, end: 20150113
  12. FENTOS (FENTANYL CITRATE) [Concomitant]
     Route: 062
     Dates: start: 20141117, end: 20141124

REACTIONS (2)
  - Oesophageal carcinoma [Fatal]
  - Constipation [Recovering/Resolving]

NARRATIVE: CASE EVENT DATE: 20141112
